FAERS Safety Report 18928537 (Version 2)
Quarter: 2021Q1

REPORT INFORMATION
  Report Type: Spontaneous
  Country: US (occurrence: US)
  Receive Date: 20210223
  Receipt Date: 20210329
  Transmission Date: 20210420
  Serious: No
  Sender: FDA-Public Use
  Company Number: US-ALK-ABELLO A/S-2021AA000348

PATIENT

DRUGS (2)
  1. HISTATROL 1MG/ML (PERCUTANEOUS) [Suspect]
     Active Substance: HISTAMINE PHOSPHATE
     Indication: SKIN TEST
     Route: 003
  2. PRE?PEN [Concomitant]
     Active Substance: BENZYLPENICILLOYL POLYLYSINE
     Indication: ALLERGY TEST

REACTIONS (1)
  - False negative investigation result [Unknown]
